FAERS Safety Report 7626224-8 (Version None)
Quarter: 2011Q3

REPORT INFORMATION
  Report Type: 
  Country: None (occurrence: None)
  Receive Date: 20110721
  Receipt Date: 20110713
  Transmission Date: 20111222
  Serious: Yes (Other)
  Sender: FDA-Public Use
  Company Number: CA-ABBOTT-11P-028-0722824-00

PATIENT
  Sex: Male
  Weight: 113 kg

DRUGS (8)
  1. NORVASC [Concomitant]
     Indication: HYPERTENSION
     Dates: start: 20070205
  2. LIPITOR [Concomitant]
     Indication: HYPERLIPIDAEMIA
     Dates: start: 20020516
  3. HUMIRA [Suspect]
     Indication: PSORIASIS
     Route: 058
     Dates: start: 20090507, end: 20110203
  4. RHOXAL-BISOPROLOL [Concomitant]
     Indication: HYPERTENSION
     Dates: start: 20080528
  5. TYLENOL-500 [Concomitant]
     Indication: HEADACHE
     Dates: start: 19700101
  6. HYDROCHLOROTHIAZIDE [Concomitant]
     Indication: HYPERTENSION
     Dates: start: 20080528
  7. ASPIRIN [Concomitant]
     Indication: THROMBOSIS PROPHYLAXIS
     Dates: start: 20061221
  8. HUMIRA [Suspect]
     Route: 058
     Dates: start: 20110310

REACTIONS (1)
  - THYROID CANCER [None]
